FAERS Safety Report 16692856 (Version 1)
Quarter: 2019Q3

REPORT INFORMATION
  Report Type: Report from Study
  Country: FI (occurrence: FI)
  Receive Date: 20190812
  Receipt Date: 20190812
  Transmission Date: 20191004
  Serious: Yes (Other)
  Sender: FDA-Public Use
  Company Number: FI-MYLANLABS-2019M1074120

PATIENT
  Sex: Male

DRUGS (2)
  1. ZARZIO [Concomitant]
     Active Substance: FILGRASTIM
     Dosage: 48 MILLION INTERNATIONAL UNIT, 5XD
  2. LEPONEX [Suspect]
     Active Substance: CLOZAPINE
     Indication: PRODUCT USED FOR UNKNOWN INDICATION
     Dosage: 450 MILLIGRAM, QD

REACTIONS (2)
  - Hodgkin^s disease [Unknown]
  - Neutropenia [Recovered/Resolved]

NARRATIVE: CASE EVENT DATE: 2019
